FAERS Safety Report 13703811 (Version 1)
Quarter: 2017Q2

REPORT INFORMATION
  Report Type: Spontaneous
  Country: US (occurrence: US)
  Receive Date: 20170629
  Receipt Date: 20170629
  Transmission Date: 20170830
  Serious: No
  Sender: FDA-Public Use
  Company Number: US-IPSEN BIOPHARMACEUTICALS, INC.-2015-08294

PATIENT
  Age: 57 Year
  Sex: Female

DRUGS (5)
  1. RADIESSE [Suspect]
     Active Substance: TRIBASIC CALCIUM PHOSPHATE
     Indication: SKIN COSMETIC PROCEDURE
     Dosage: 4 X 1.5 (UNITS NOT REPORTED)
     Dates: start: 20151005, end: 20151005
  2. DYSPORT [Suspect]
     Active Substance: ABOBOTULINUMTOXINA
     Indication: PRODUCT USE IN UNAPPROVED INDICATION
  3. RESTYLANE [Suspect]
     Active Substance: HYALURONIC ACID
     Indication: SKIN COSMETIC PROCEDURE
     Dosage: RECEIVED 2 RESTYLANE
     Dates: start: 20151005, end: 20151005
  4. DYSPORT [Suspect]
     Active Substance: ABOBOTULINUMTOXINA
     Indication: SKIN WRINKLING
     Route: 030
     Dates: start: 20151005, end: 20151005
  5. DYSPORT [Suspect]
     Active Substance: ABOBOTULINUMTOXINA
     Indication: SKIN WRINKLING

REACTIONS (6)
  - Injection site bruising [Recovering/Resolving]
  - Swelling [Recovered/Resolved]
  - Injection site pain [Not Recovered/Not Resolved]
  - Incorrect product storage [Unknown]
  - Product preparation error [Unknown]
  - Drug ineffective [Unknown]

NARRATIVE: CASE EVENT DATE: 2015
